FAERS Safety Report 22388088 (Version 3)
Quarter: 2023Q2

REPORT INFORMATION
  Report Type: Spontaneous
  Country: US (occurrence: US)
  Receive Date: 20230531
  Receipt Date: 20230619
  Transmission Date: 20230722
  Serious: Yes (Other)
  Sender: FDA-Public Use
  Company Number: US-BRISTOL-MYERS SQUIBB COMPANY-2023-076541

PATIENT
  Age: 72 Year
  Sex: Female
  Weight: 69.85 kg

DRUGS (2)
  1. POMALYST [Suspect]
     Active Substance: POMALIDOMIDE
     Indication: Plasma cell myeloma
     Dosage: TAKE 1 CAPSULE BY MOUTH EVERY DAY ON?TAKE 1 CAPSULE BY MOUTH EVERY DAY ON AN EMPTY STOMACH
     Route: 048
     Dates: start: 20230524
  2. POMALYST [Suspect]
     Active Substance: POMALIDOMIDE
     Route: 048
     Dates: start: 20230527

REACTIONS (6)
  - Headache [Not Recovered/Not Resolved]
  - Pruritus [Recovering/Resolving]
  - Platelet count increased [Recovering/Resolving]
  - Rash [Recovering/Resolving]
  - Rash macular [Recovering/Resolving]
  - Cataract [Unknown]

NARRATIVE: CASE EVENT DATE: 20230603
